FAERS Safety Report 8028257-9 (Version None)
Quarter: 2012Q1

REPORT INFORMATION
  Report Type: 
  Country: None (occurrence: None)
  Receive Date: 20120106
  Receipt Date: 20120103
  Transmission Date: 20120608
  Serious: Yes (Hospitalization)
  Sender: FDA-Public Use
  Company Number: FR-SHIRE-SPV1-2012-00007

PATIENT
  Age: 74 Year
  Sex: Male

DRUGS (1)
  1. LANTHANUM CARBONATE [Suspect]
     Indication: PRODUCT USED FOR UNKNOWN INDICATION
     Dosage: 1000 MG, 3X/DAY:TID

REACTIONS (2)
  - FAECALOMA [None]
  - ILEUS PARALYTIC [None]
